FAERS Safety Report 7618335-8 (Version None)
Quarter: 2011Q3

REPORT INFORMATION
  Report Type: 
  Country: None (occurrence: None)
  Receive Date: 20110718
  Receipt Date: 20110713
  Transmission Date: 20111222
  Serious: Yes (Hospitalization)
  Sender: FDA-Public Use
  Company Number: CO-ROCHE-789394

PATIENT
  Sex: Male

DRUGS (2)
  1. MIRCERA [Suspect]
     Route: 058
     Dates: start: 20110401
  2. PREDNISOLONE [Concomitant]
     Indication: ANTIINFLAMMATORY THERAPY
     Route: 048

REACTIONS (1)
  - ENDOCARDITIS BACTERIAL [None]
